FAERS Safety Report 8217547-2 (Version None)
Quarter: 2012Q1

REPORT INFORMATION
  Report Type: 
  Country: None (occurrence: None)
  Receive Date: 20120305
  Receipt Date: 20111027
  Transmission Date: 20120608
  Serious: No
  Sender: FDA-Public Use
  Company Number: 1000025005

PATIENT
  Age: 77 Year
  Sex: Male

DRUGS (7)
  1. MUCINEX (GUAIFENESIN) (GUAIFENESIN) [Concomitant]
  2. DALIRESP [Suspect]
     Indication: EMPHYSEMA
     Dosage: 500 MCG (500 MCG, 1 IN 1 D), ORAL
     Route: 048
     Dates: start: 20111020, end: 20111026
  3. DALIRESP [Suspect]
     Indication: CHRONIC OBSTRUCTIVE PULMONARY DISEASE
     Dosage: 500 MCG (500 MCG, 1 IN 1 D), ORAL
     Route: 048
     Dates: start: 20111020, end: 20111026
  4. FINASTERIDE (FINASTERIDE) (FINASTERIDE) [Concomitant]
  5. TERAZOSIN (TERAZOSIN) (TERAZOSIN) [Concomitant]
  6. SPIRIVA (TIOTROPIUM BROMIDE) (TIOTROPIUM BROMIDE) [Concomitant]
  7. FORADIL (FORMOTEROL FUMARATE) (FORMOTEROL FUMARATE) [Concomitant]

REACTIONS (7)
  - DIZZINESS [None]
  - HEADACHE [None]
  - FLATULENCE [None]
  - BACK PAIN [None]
  - INSOMNIA [None]
  - OFF LABEL USE [None]
  - DIARRHOEA [None]
